FAERS Safety Report 14072196 (Version 1)
Quarter: 2017Q4

REPORT INFORMATION
  Report Type: Report from Study
  Country: US (occurrence: US)
  Receive Date: 20171010
  Receipt Date: 20171010
  Transmission Date: 20180321
  Serious: No
  Sender: FDA-Public Use
  Company Number: PHEH2017US032349

PATIENT
  Sex: Male

DRUGS (1)
  1. COSENTYX [Suspect]
     Active Substance: SECUKINUMAB
     Indication: PSORIASIS
     Dosage: 300 MG, QMO
     Route: 065
     Dates: start: 20160421

REACTIONS (5)
  - Meniscus injury [Unknown]
  - Inappropriate schedule of drug administration [Unknown]
  - Road traffic accident [Unknown]
  - Blister [Unknown]
  - Sinusitis [Unknown]

NARRATIVE: CASE EVENT DATE: 20160421
